FAERS Safety Report 25738439 (Version 1)
Quarter: 2025Q3

REPORT INFORMATION
  Report Type: Spontaneous
  Country: AU (occurrence: AU)
  Receive Date: 20250829
  Receipt Date: 20250829
  Transmission Date: 20251020
  Serious: Yes (Other)
  Sender: ACCORD
  Company Number: None

PATIENT
  Age: 71 Year
  Sex: Male

DRUGS (2)
  1. TADALAFIL [Suspect]
     Active Substance: TADALAFIL
     Indication: Product used for unknown indication
  2. MACITENTAN [Suspect]
     Active Substance: MACITENTAN
     Indication: Product used for unknown indication

REACTIONS (3)
  - Pulmonary oedema [Unknown]
  - Lung transplant [Unknown]
  - Accidental exposure to product [Unknown]
